FAERS Safety Report 18296573 (Version 2)
Quarter: 2020Q4

REPORT INFORMATION
  Report Type: Spontaneous
  Country: FR (occurrence: FR)
  Receive Date: 20200922
  Receipt Date: 20201016
  Transmission Date: 20210113
  Serious: Yes (Life-Threatening, Hospitalization, Other)
  Sender: FDA-Public Use
  Company Number: NVSC2020FR257216

PATIENT
  Age: 73 Year
  Sex: Male

DRUGS (15)
  1. CYTARABINE. [Suspect]
     Active Substance: CYTARABINE
     Indication: ACUTE MYELOID LEUKAEMIA
     Dosage: UNK (CONSOLIDATION CHEMOTHERAPY COURSE/ INDUCTION CHEMOTHERAPY)
     Route: 065
  2. AZACITIDINE. [Suspect]
     Active Substance: AZACITIDINE
     Indication: ACUTE MYELOID LEUKAEMIA
     Dosage: 75 MG/M2, CYCLIC 7DAY PERIOD,EVERY 28 DAYS,
     Route: 065
  3. LOMUSTINE. [Suspect]
     Active Substance: LOMUSTINE
     Indication: ACUTE MYELOID LEUKAEMIA
     Dosage: UNK
     Route: 065
  4. LOMUSTINE. [Suspect]
     Active Substance: LOMUSTINE
     Indication: CHEMOTHERAPY
  5. IDARUBICIN [Suspect]
     Active Substance: IDARUBICIN
     Indication: ACUTE MYELOID LEUKAEMIA
     Dosage: UNK (CONSOLIDATION CHEMOTHERAPY COURSE/ INDUCTION CHEMOTHERAPY)
     Route: 065
  6. AMIKACIN. [Concomitant]
     Active Substance: AMIKACIN
     Indication: ANTIBIOTIC THERAPY
     Dosage: 1800 MG (SINGLE DOSE)
     Route: 065
  7. CEFEPIME [Concomitant]
     Active Substance: CEFEPIME HYDROCHLORIDE
     Indication: ANTIBIOTIC THERAPY
     Dosage: 6 G, QD
     Route: 065
  8. CYTARABINE. [Suspect]
     Active Substance: CYTARABINE
     Indication: CHEMOTHERAPY
  9. IDARUBICIN [Suspect]
     Active Substance: IDARUBICIN
     Indication: CHEMOTHERAPY
  10. CIPROFLOXACIN. [Suspect]
     Active Substance: CIPROFLOXACIN
     Indication: ANTIBIOTIC THERAPY
     Dosage: 1500 MG, QD
     Route: 065
  11. VANCOMYCIN [Concomitant]
     Active Substance: VANCOMYCIN
     Indication: ANTIBIOTIC THERAPY
     Dosage: 2 G, QD
     Route: 050
  12. PIPERACILLIN/TAZOBACTAM [Concomitant]
     Active Substance: PIPERACILLIN SODIUM\TAZOBACTAM SODIUM
     Indication: ANTIBIOTIC THERAPY
     Dosage: 1 DF, QID (PIPERACILLIN/TAZOBACTAM 4 G/500 MG FOUR TIMES A DAY)
     Route: 065
  13. AZACITIDINE. [Suspect]
     Active Substance: AZACITIDINE
     Indication: CHEMOTHERAPY
  14. MEROPENEM. [Suspect]
     Active Substance: MEROPENEM
     Indication: EVIDENCE BASED TREATMENT
     Dosage: 6 G, QD
     Route: 065
  15. ARACYTIN [Concomitant]
     Active Substance: CYTARABINE
     Indication: ACUTE MYELOID LEUKAEMIA
     Dosage: UNK
     Route: 065

REACTIONS (6)
  - Aeromonas infection [Recovered/Resolved]
  - Abscess bacterial [Recovered/Resolved]
  - Septic shock [Recovered/Resolved]
  - Necrotising fasciitis [Recovered/Resolved]
  - Pathogen resistance [Unknown]
  - Abscess limb [Recovered/Resolved]
